FAERS Safety Report 10027687 (Version 3)
Quarter: 2014Q2

REPORT INFORMATION
  Report Type: Spontaneous
  Country: JP (occurrence: JP)
  Receive Date: 20140321
  Receipt Date: 20140623
  Transmission Date: 20141212
  Serious: Yes (Hospitalization, Disabling)
  Sender: FDA-Public Use
  Company Number: PHHY2014JP031487

PATIENT
  Age: 21 Year
  Sex: Female

DRUGS (7)
  1. NEORAL [Suspect]
     Indication: BONE MARROW TRANSPLANT
     Dosage: 200 MG, DAILY
     Route: 048
     Dates: start: 20120617, end: 20120619
  2. NEORAL [Suspect]
     Indication: CHRONIC GRAFT VERSUS HOST DISEASE
  3. MYCOPHENOLATE MOFETIL [Suspect]
     Route: 048
  4. ENDOXAN [Concomitant]
  5. GLIVEC [Concomitant]
     Indication: CHRONIC MYELOID LEUKAEMIA
     Dosage: 100 MG, DAILY
     Route: 048
  6. GLIVEC [Concomitant]
     Dosage: 200 MG, DAILY
     Dates: start: 201207
  7. ETRETINATE [Concomitant]

REACTIONS (5)
  - Encephalopathy [Recovering/Resolving]
  - Sclerema [Recovered/Resolved]
  - Oedema [Recovered/Resolved]
  - Joint contracture [Recovered/Resolved]
  - Drug ineffective [Unknown]
